FAERS Safety Report 8574456-7 (Version None)
Quarter: 2012Q3

REPORT INFORMATION
  Report Type: 
  Country: None (occurrence: None)
  Receive Date: 20120806
  Receipt Date: 20110822
  Transmission Date: 20120928
  Serious: No
  Sender: FDA-Public Use
  Company Number: US-ABBOTT-11P-163-0715421-00

PATIENT
  Sex: Male
  Weight: 113.5 kg

DRUGS (10)
  1. DEPAKOTE ER [Suspect]
     Indication: BIPOLAR DISORDER
     Dates: start: 20110501
  2. TRIAVIL [Concomitant]
     Indication: DEPRESSION
  3. DEPAKOTE ER [Suspect]
     Dates: start: 20110501
  4. LITHIUM CARBONATE [Concomitant]
     Indication: AFFECTIVE DISORDER
  5. ZYPREXA [Suspect]
     Indication: BIPOLAR DISORDER
     Dates: start: 20110501
  6. LITHIUM CARBONATE [Concomitant]
     Indication: BIPOLAR DISORDER
  7. DEPAKOTE ER [Suspect]
     Indication: BIPOLAR I DISORDER
  8. XANAX [Concomitant]
     Indication: PRODUCT USED FOR UNKNOWN INDICATION
  9. PROVIGIL [Concomitant]
     Indication: PRODUCT USED FOR UNKNOWN INDICATION
  10. TRIAVIL [Concomitant]
     Indication: BIPOLAR DISORDER

REACTIONS (3)
  - WEIGHT INCREASED [None]
  - TREMOR [None]
  - DECREASED ACTIVITY [None]
